FAERS Safety Report 7097334-1 (Version None)
Quarter: 2010Q4

REPORT INFORMATION
  Report Type: 
  Country: None (occurrence: None)
  Receive Date: 20101111
  Receipt Date: 20101109
  Transmission Date: 20110411
  Serious: Yes (Death, Hospitalization)
  Sender: FDA-Public Use
  Company Number: US-B.I. PHARMACEUTICALS,INC./RIDGEFIELD-2010-BP-07951BP

PATIENT
  Sex: Female
  Weight: 53.52 kg

DRUGS (12)
  1. AGGRENOX [Suspect]
     Indication: TRANSIENT ISCHAEMIC ATTACK
     Route: 048
     Dates: start: 20100713, end: 20100713
  2. MEDICATION NOT FURTHER SPECIFIED [Concomitant]
     Indication: HYPERTENSION
  3. MEDICATION NOT FURTHER SPECIFIED [Concomitant]
     Indication: CARDIAC DISORDER
  4. BYSTOLIC [Concomitant]
     Dosage: 5 MG
  5. PLAVIX [Concomitant]
  6. FLUOXETINE [Concomitant]
  7. CYPROHEPTADINE HCL [Concomitant]
  8. OMEPRAZOLE [Concomitant]
     Dosage: 20 MG
  9. CYCLOBENZAPRINE [Concomitant]
  10. DIAZEPAM [Concomitant]
  11. VALIUM [Concomitant]
  12. PREMARIN [Concomitant]
     Dosage: 0.6 MG

REACTIONS (12)
  - ABDOMINAL PAIN UPPER [None]
  - BACK PAIN [None]
  - CARDIO-RESPIRATORY ARREST [None]
  - CEREBROVASCULAR ACCIDENT [None]
  - CHEST PAIN [None]
  - FEELING ABNORMAL [None]
  - HAEMORRHAGE INTRACRANIAL [None]
  - NECK PAIN [None]
  - PAIN IN EXTREMITY [None]
  - PULSE ABSENT [None]
  - RESPIRATORY FAILURE [None]
  - UNRESPONSIVE TO STIMULI [None]
